FAERS Safety Report 8425789 (Version 3)
Quarter: 2013Q2

REPORT INFORMATION
  Report Type: Spontaneous
  Country: US (occurrence: US)
  Receive Date: 20120224
  Receipt Date: 20130429
  Transmission Date: 20140414
  Serious: Yes (Other)
  Sender: FDA-Public Use
  Company Number: CHPA2012US001883

PATIENT
  Age: 57 Year
  Sex: Male

DRUGS (3)
  1. EXCEDRIN MIGRAINE [Suspect]
     Indication: SINUS CONGESTION
     Dosage: 2 DF, UNK
     Route: 048
     Dates: start: 201006, end: 201006
  2. EXCEDRIN MIGRAINE [Suspect]
     Dosage: 1 DF, UNK
     Route: 048
     Dates: start: 201008, end: 201008
  3. EXCEDRIN MIGRAINE [Suspect]
     Dosage: 2 DF, UNK
     Route: 048
     Dates: start: 201006, end: 201006

REACTIONS (6)
  - Idiopathic urticaria [Not Recovered/Not Resolved]
  - Cluster headache [Not Recovered/Not Resolved]
  - Headache [Not Recovered/Not Resolved]
  - Chest pain [Recovered/Resolved]
  - Malaise [Unknown]
  - Off label use [Unknown]
